FAERS Safety Report 9444806 (Version 22)
Quarter: 2020Q1

REPORT INFORMATION
  Report Type: Report from Study
  Country: US (occurrence: US)
  Receive Date: 20130807
  Receipt Date: 20200225
  Transmission Date: 20200409
  Serious: Yes (Hospitalization, Other)
  Sender: FDA-Public Use
  Company Number: US-SANOFI-AVENTIS-2013SA078735

PATIENT
  Age: 68 Year
  Sex: Female
  Weight: 66.67 kg

DRUGS (19)
  1. ALPRAZOLAM. [Concomitant]
     Active Substance: ALPRAZOLAM
     Dosage: 1 MG,QID
  2. TERIFLUNOMIDE. [Suspect]
     Active Substance: TERIFLUNOMIDE
     Indication: MULTIPLE SCLEROSIS
     Dosage: 14 MG,QD
     Route: 048
     Dates: start: 20130425, end: 201408
  3. TRAZODONE [Concomitant]
     Active Substance: TRAZODONE HYDROCHLORIDE
     Dosage: UNK UNK,HS
  4. CYANOCOBALAMIN. [Concomitant]
     Active Substance: CYANOCOBALAMIN
     Dosage: UNK
  5. IRON [Concomitant]
     Active Substance: IRON
     Dosage: UNK
  6. ZETIA [Concomitant]
     Active Substance: EZETIMIBE
     Dosage: UNK
  7. AMITIZA [Concomitant]
     Active Substance: LUBIPROSTONE
     Dosage: 24 UG,UNK
  8. OMEPRAZOLE. [Concomitant]
     Active Substance: OMEPRAZOLE
  9. TERIFLUNOMIDE. [Suspect]
     Active Substance: TERIFLUNOMIDE
     Dosage: 14 MG, QD
     Route: 048
     Dates: start: 20200110
  10. OCREVUS [Suspect]
     Active Substance: OCRELIZUMAB
     Dosage: UNK UNK, UNK
  11. VESICARE [Concomitant]
     Active Substance: SOLIFENACIN SUCCINATE
     Dosage: 1 DF,QD
  12. SIMVASTATIN. [Concomitant]
     Active Substance: SIMVASTATIN
     Dosage: 20 MG,UNK
  13. TERIFLUNOMIDE. [Suspect]
     Active Substance: TERIFLUNOMIDE
     Dosage: 14 MG,QD
     Route: 048
     Dates: start: 2014, end: 20170330
  14. DESMOPRESSIN ACETATE. [Concomitant]
     Active Substance: DESMOPRESSIN ACETATE
     Dosage: .2 MG,HS
  15. VITAMIN D3 [Concomitant]
     Active Substance: CHOLECALCIFEROL
  16. TOPIRAMATE. [Concomitant]
     Active Substance: TOPIRAMATE
     Dosage: 3 DF,BID
  17. BUTRANS [Concomitant]
     Active Substance: BUPRENORPHINE
     Dosage: UNK
  18. PROMETHAZINE [Concomitant]
     Active Substance: PROMETHAZINE HYDROCHLORIDE
     Dosage: 25 MG,UNK
  19. VIT D [Concomitant]
     Active Substance: VITAMIN D NOS

REACTIONS (51)
  - Chronic obstructive pulmonary disease [Unknown]
  - Viral infection [Recovering/Resolving]
  - Musculoskeletal pain [Unknown]
  - Neck pain [Unknown]
  - Decreased appetite [Unknown]
  - Gastrooesophageal reflux disease [Recovering/Resolving]
  - Migraine [Unknown]
  - Tooth disorder [Unknown]
  - Tooth loss [Unknown]
  - Spinal compression fracture [Not Recovered/Not Resolved]
  - Weight decreased [Unknown]
  - Diarrhoea [Unknown]
  - Depression [Unknown]
  - Pollakiuria [Unknown]
  - Vitamin B12 abnormal [Unknown]
  - Fall [Unknown]
  - Back pain [Unknown]
  - Headache [Unknown]
  - Rib fracture [Recovering/Resolving]
  - Asthenia [Not Recovered/Not Resolved]
  - Neuralgia [Unknown]
  - Memory impairment [Unknown]
  - Malaise [Unknown]
  - Cough [Unknown]
  - Contusion [Not Recovered/Not Resolved]
  - Fall [Unknown]
  - Confusional state [Unknown]
  - Dyspnoea [Recovering/Resolving]
  - Liver disorder [Unknown]
  - Pharyngitis [Unknown]
  - Nasopharyngitis [Unknown]
  - Bladder disorder [Unknown]
  - Femur fracture [Unknown]
  - Spinal osteoarthritis [Unknown]
  - Pyrexia [Unknown]
  - Blood count abnormal [Not Recovered/Not Resolved]
  - Fatigue [Not Recovered/Not Resolved]
  - Unevaluable event [Unknown]
  - Drug ineffective [Unknown]
  - Blood cholesterol increased [Recovering/Resolving]
  - Dysphonia [Recovering/Resolving]
  - Heart rate increased [Recovered/Resolved]
  - Lower limb fracture [Unknown]
  - Bronchitis [Not Recovered/Not Resolved]
  - Sinusitis [Unknown]
  - Vomiting [Unknown]
  - Multiple sclerosis relapse [Recovered/Resolved]
  - Fall [Unknown]
  - Speech disorder [Unknown]
  - Cough [Recovering/Resolving]
  - Liver function test abnormal [Unknown]

NARRATIVE: CASE EVENT DATE: 2013
